FAERS Safety Report 8873632 (Version 1)
Quarter: 2012Q4

REPORT INFORMATION
  Report Type: 
  Country: FR (occurrence: FR)
  Receive Date: 20121030
  Receipt Date: 20121030
  Transmission Date: 20130627
  Serious: Yes (Death, Other)
  Sender: FDA-Public Use
  Company Number: PHHY2012FR095495

PATIENT
  Age: 37 Year
  Sex: Male

DRUGS (3)
  1. ROPINIROLE [Suspect]
  2. ALCOHOL [Concomitant]
  3. PARACETAMOL [Concomitant]

REACTIONS (5)
  - Toxicity to various agents [Fatal]
  - Overdose [Fatal]
  - Drug level increased [Fatal]
  - Pulmonary oedema [Unknown]
  - Hepatic congestion [Unknown]
